FAERS Safety Report 9700992 (Version 2)
Quarter: 2013Q4

REPORT INFORMATION
  Report Type: Report from Study
  Country: FR (occurrence: FR)
  Receive Date: 20131121
  Receipt Date: 20131204
  Transmission Date: 20140711
  Serious: Yes (Hospitalization)
  Sender: FDA-Public Use
  Company Number: FR-ASTELLAS-2013EU010086

PATIENT
  Age: 40 Year
  Sex: Male

DRUGS (3)
  1. ADVAGRAF [Suspect]
     Dosage: UNK
     Route: 048
     Dates: start: 20131022
  2. MYFORTIC [Suspect]
     Dosage: UNK
     Route: 048
     Dates: start: 20131022
  3. CORTANCYL [Suspect]
     Dosage: UNK
     Route: 065
     Dates: start: 20131022

REACTIONS (1)
  - Wound dehiscence [Recovered/Resolved]
